FAERS Safety Report 4891215-7 (Version None)
Quarter: 2006Q1

REPORT INFORMATION
  Report Type: 
  Country: None (occurrence: None)
  Receive Date: 20060125
  Receipt Date: 20060113
  Transmission Date: 20060701
  Serious: Yes (Other)
  Sender: FDA-Public Use
  Company Number: GB-BRISTOL-MYERS SQUIBB COMPANY-13253588

PATIENT

DRUGS (2)
  1. ERBITUX [Suspect]
  2. OXALIPLATIN [Concomitant]

REACTIONS (1)
  - AMAUROSIS FUGAX [None]
